FAERS Safety Report 11658583 (Version 2)
Quarter: 2015Q4

REPORT INFORMATION
  Report Type: Spontaneous
  Country: US (occurrence: US)
  Receive Date: 20151026
  Receipt Date: 20151108
  Transmission Date: 20160304
  Serious: No
  Sender: FDA-Public Use
  Company Number: US-009507513-1510USA008242

PATIENT
  Age: 63 Year
  Sex: Male

DRUGS (11)
  1. ASPIRIN. [Concomitant]
     Active Substance: ASPIRIN
  2. FLUOROMETHOLONE. [Concomitant]
     Active Substance: FLUOROMETHOLONE
  3. GABAPENTIN. [Concomitant]
     Active Substance: GABAPENTIN
  4. CIPROFLOXACIN (+) DEXAMETHASONE [Concomitant]
  5. PROVENTIL [Concomitant]
     Active Substance: ALBUTEROL
  6. ATORVASTATIN [Concomitant]
     Active Substance: ATORVASTATIN
  7. CYANOCOBALAMIN. [Concomitant]
     Active Substance: CYANOCOBALAMIN
  8. FLUTICASONE [Concomitant]
     Active Substance: FLUTICASONE\FLUTICASONE PROPIONATE
  9. INSULIN GLARGINE [Concomitant]
     Active Substance: INSULIN GLARGINE
  10. LAMOTRIGINE. [Concomitant]
     Active Substance: LAMOTRIGINE
  11. CUBICIN [Suspect]
     Active Substance: DAPTOMYCIN
     Indication: OSTEOMYELITIS
     Dosage: 475 MG, QD
     Route: 042
     Dates: start: 20151008

REACTIONS (4)
  - Injection site erythema [Recovering/Resolving]
  - Product use issue [Unknown]
  - Injection site swelling [Recovering/Resolving]
  - Overdose [Unknown]

NARRATIVE: CASE EVENT DATE: 20151008
